FAERS Safety Report 9228317 (Version 2)
Quarter: 2013Q2

REPORT INFORMATION
  Report Type: Report from Study
  Country: US (occurrence: US)
  Receive Date: 20130412
  Receipt Date: 20130522
  Transmission Date: 20140414
  Serious: Yes (Death, Other)
  Sender: FDA-Public Use
  Company Number: US-ROCHE-1210976

PATIENT
  Age: 65 Year
  Sex: Male

DRUGS (5)
  1. ALTEPLASE [Suspect]
     Indication: ISCHAEMIC STROKE
     Route: 042
  2. ASPIRIN [Suspect]
     Indication: CEREBROVASCULAR ACCIDENT PROPHYLAXIS
     Route: 065
  3. CLOPIDOGREL [Suspect]
     Indication: CEREBROVASCULAR ACCIDENT PROPHYLAXIS
     Route: 065
  4. REOPRO [Suspect]
     Indication: ISCHAEMIC STROKE
     Route: 040
  5. REOPRO [Suspect]
     Route: 042

REACTIONS (8)
  - Aphasia [Fatal]
  - Hemiplegia [Fatal]
  - Thrombosis in device [Fatal]
  - Drug ineffective [Recovered/Resolved]
  - Haematoma [Unknown]
  - Haemoglobin decreased [Unknown]
  - Vascular pseudoaneurysm [Unknown]
  - Puncture site haemorrhage [Unknown]
